FAERS Safety Report 8565768-1 (Version None)
Quarter: 2012Q3

REPORT INFORMATION
  Report Type: 
  Country: None (occurrence: None)
  Receive Date: 20120803
  Receipt Date: 20110928
  Transmission Date: 20120928
  Serious: No
  Sender: FDA-Public Use
  Company Number: US-ABBOTT-11P-163-0858399-00

PATIENT
  Sex: Male
  Weight: 89.438 kg

DRUGS (5)
  1. GARLIC [Concomitant]
     Indication: PRODUCT USED FOR UNKNOWN INDICATION
     Dosage: OIL
  2. NIASPAN [Suspect]
     Indication: PRODUCT USED FOR UNKNOWN INDICATION
     Dosage: 1000-200 MG AT BEDTIME
     Dates: start: 20110901
  3. NITROGLYCERIN [Concomitant]
     Indication: CHEST PAIN
  4. VITAMIN B-12 [Concomitant]
     Indication: PRODUCT USED FOR UNKNOWN INDICATION
  5. ASPIRIN [Concomitant]
     Indication: PRODUCT USED FOR UNKNOWN INDICATION

REACTIONS (5)
  - PAIN [None]
  - DIZZINESS [None]
  - PRURITUS [None]
  - HEADACHE [None]
  - NAUSEA [None]
